FAERS Safety Report 7759310-2 (Version None)
Quarter: 2011Q3

REPORT INFORMATION
  Report Type: 
  Country: None (occurrence: None)
  Receive Date: 20110919
  Receipt Date: 20110911
  Transmission Date: 20111222
  Serious: Yes (Other)
  Sender: FDA-Public Use
  Company Number: US-BAXTER-2011BH029170

PATIENT
  Age: 23 Year
  Sex: Male

DRUGS (4)
  1. GAMMAR-P I.V. [Suspect]
     Indication: IMMUNOGLOBULINS DECREASED
     Route: 042
  2. POLYGAM S/D [Suspect]
     Indication: IMMUNOGLOBULINS DECREASED
     Route: 042
  3. GAMUNEX [Suspect]
     Indication: IMMUNOGLOBULINS DECREASED
     Route: 065
  4. SANDOGLOBULIN [Suspect]
     Indication: IMMUNOGLOBULINS DECREASED
     Route: 065

REACTIONS (2)
  - HAEMATURIA [None]
  - GLOMERULONEPHRITIS MEMBRANOUS [None]
